FAERS Safety Report 23799278 (Version 3)
Quarter: 2024Q3

REPORT INFORMATION
  Report Type: Spontaneous
  Country: US (occurrence: US)
  Receive Date: 20240430
  Receipt Date: 20240705
  Transmission Date: 20241017
  Serious: No
  Sender: BRISTOL MYERS SQUIBB
  Company Number: US-BRISTOL-MYERS SQUIBB COMPANY-2024-066557

PATIENT
  Age: 53 Year
  Sex: Female

DRUGS (2)
  1. ZEPOSIA [Suspect]
     Active Substance: OZANIMOD HYDROCHLORIDE
     Indication: Colitis ulcerative
     Dosage: (7 DAY STARTER PAK)
     Route: 048
     Dates: start: 202404
  2. ZEPOSIA [Suspect]
     Active Substance: OZANIMOD HYDROCHLORIDE
     Dosage: (7 DAY STARTER PAK)
     Route: 048
     Dates: start: 202404

REACTIONS (3)
  - Hypoaesthesia oral [Unknown]
  - Hypoaesthesia [Unknown]
  - Blood pressure increased [Recovered/Resolved]
